FAERS Safety Report 25656074 (Version 1)
Quarter: 2025Q3

REPORT INFORMATION
  Report Type: Report from Study
  Country: EU (occurrence: EU)
  Receive Date: 20250807
  Receipt Date: 20250807
  Transmission Date: 20251020
  Serious: Yes (Other)
  Sender: ALEXION PHARMACEUTICALS
  Company Number: EU-AstraZeneca-CH-00921781A

PATIENT
  Sex: Female

DRUGS (1)
  1. SELUMETINIB [Suspect]
     Active Substance: SELUMETINIB
     Route: 065

REACTIONS (10)
  - Neutropenia [Unknown]
  - Dry skin [Unknown]
  - Pyrexia [Unknown]
  - Paronychia [Unknown]
  - Oedema peripheral [Unknown]
  - Pruritus [Unknown]
  - Lymphopenia [Unknown]
  - White blood cell count decreased [Unknown]
  - Blood creatine phosphokinase increased [Unknown]
  - Hypoalbuminaemia [Unknown]
